FAERS Safety Report 9287599 (Version 1)
Quarter: 2013Q2

REPORT INFORMATION
  Report Type: Spontaneous
  Country: US (occurrence: US)
  Receive Date: 20130514
  Receipt Date: 20130514
  Transmission Date: 20140414
  Serious: No
  Sender: FDA-Public Use
  Company Number: US-B.I. PHARMACEUTICALS,INC./RIDGEFIELD-2013-BI-12216BP

PATIENT
  Sex: Male

DRUGS (4)
  1. MICARDIS [Suspect]
  2. CRESTOR [Suspect]
  3. VITAMIN D SUPPLEMENT [Suspect]
  4. 27 OTHER MEDICINE [Concomitant]

REACTIONS (1)
  - Skin irritation [Unknown]
